FAERS Safety Report 8598849-7 (Version None)
Quarter: 2012Q3

REPORT INFORMATION
  Report Type: 
  Country: None (occurrence: None)
  Receive Date: 20120816
  Receipt Date: 20120809
  Transmission Date: 20120928
  Serious: Yes (Life-Threatening, Hospitalization, Other)
  Sender: FDA-Public Use
  Company Number: EG-GLAXOSMITHKLINE-B0822644A

PATIENT
  Age: 23 Year
  Sex: Male
  Weight: 120 kg

DRUGS (2)
  1. VENLAFAXINE [Suspect]
     Indication: DEPRESSION
     Dosage: 1500MG PER DAY
     Route: 048
     Dates: start: 20120504, end: 20120602
  2. LAMICTAL [Suspect]
     Indication: PRODUCT USED FOR UNKNOWN INDICATION
     Dosage: 3000MG PER DAY
     Dates: start: 20120601, end: 20120602

REACTIONS (13)
  - TACHYCARDIA [None]
  - SUICIDE ATTEMPT [None]
  - MYOPATHY [None]
  - LOSS OF CONSCIOUSNESS [None]
  - RENAL FAILURE ACUTE [None]
  - HYPERTENSION [None]
  - MUSCLE RIGIDITY [None]
  - HEPATIC ENZYME INCREASED [None]
  - NEUROPATHY PERIPHERAL [None]
  - STATUS EPILEPTICUS [None]
  - RESPIRATORY DISTRESS [None]
  - LOBAR PNEUMONIA [None]
  - GRAND MAL CONVULSION [None]
